FAERS Safety Report 6192687-0 (Version None)
Quarter: 2009Q2

REPORT INFORMATION
  Report Type: 
  Country: None (occurrence: None)
  Receive Date: 20090518
  Receipt Date: 20090507
  Transmission Date: 20091009
  Serious: Yes (Death, Hospitalization)
  Sender: FDA-Public Use
  Company Number: ID-ROCHE-632150

PATIENT
  Age: 5 Year
  Sex: Male

DRUGS (1)
  1. OSELTAMIVIR [Suspect]
     Indication: AVIAN INFLUENZA
     Route: 065

REACTIONS (5)
  - HAEMATOCRIT DECREASED [None]
  - INFLUENZA [None]
  - PNEUMONIA [None]
  - PSYCHIATRIC SYMPTOM [None]
  - THROMBOCYTOPENIA [None]
